FAERS Safety Report 8777542 (Version 1)
Quarter: 2012Q4

REPORT INFORMATION
  Report Type: 
  Country: US (occurrence: US)
  Receive Date: 20120912
  Receipt Date: 20120912
  Transmission Date: 20130627
  Serious: Yes (Death)
  Sender: FDA-Public Use
  Company Number: US-MILLENNIUM PHARMACEUTICALS, INC.-2012-06396

PATIENT
  Sex: Female

DRUGS (1)
  1. VELCADE [Suspect]
     Indication: OVARIAN CANCER
     Dosage: UNK
     Dates: start: 20111206, end: 20120217

REACTIONS (1)
  - Death [Fatal]
